FAERS Safety Report 10531487 (Version 1)
Quarter: 2014Q4

REPORT INFORMATION
  Report Type: Report from Study
  Country: BR (occurrence: BR)
  Receive Date: 20141021
  Receipt Date: 20141021
  Transmission Date: 20150529
  Serious: Yes (Hospitalization, Other)
  Sender: FDA-Public Use
  Company Number: PHHY2014BR137097

PATIENT
  Sex: Male

DRUGS (5)
  1. SINVASCOR [Suspect]
     Active Substance: SIMVASTATIN
     Indication: BLOOD CHOLESTEROL ABNORMAL
     Dosage: 2 DF, QD
     Route: 065
     Dates: end: 20140924
  2. CONCOR [Concomitant]
     Active Substance: BISOPROLOL FUMARATE
     Indication: CARDIAC DISORDER
     Dosage: 1 DF, QD (IN THE MORNING)
     Route: 065
     Dates: end: 20140924
  3. SPIRONOLACTONE. [Concomitant]
     Active Substance: SPIRONOLACTONE
     Indication: DIURETIC THERAPY
     Dosage: UNK UKN, UNK
     Route: 065
     Dates: end: 20140924
  4. DIOVAN HCT [Suspect]
     Active Substance: HYDROCHLOROTHIAZIDE\VALSARTAN
     Indication: HYPERTENSION
     Dosage: 1 DF, QD (IN THE MORNING)
     Route: 048
     Dates: end: 20140924
  5. ENALAPRIL SANDOZ [Suspect]
     Active Substance: ENALAPRIL
     Indication: HYPERTENSION
     Dosage: 1 DF, BID (IN THE MORNING AT 8 AM AND AT NIGHT AT 6 PM)
     Route: 048
     Dates: start: 20140924, end: 20141006

REACTIONS (9)
  - Malaise [Recovering/Resolving]
  - Pleural effusion [Recovering/Resolving]
  - Abasia [Recovering/Resolving]
  - Lung disorder [Recovering/Resolving]
  - Dyspnoea [Recovering/Resolving]
  - Abnormal behaviour [Recovering/Resolving]
  - Cardiac disorder [Recovering/Resolving]
  - Blood glucose increased [Recovering/Resolving]
  - Hypertension [Recovering/Resolving]
